FAERS Safety Report 5506238-4 (Version None)
Quarter: 2007Q4

REPORT INFORMATION
  Report Type: 
  Country: None (occurrence: None)
  Receive Date: 20071101
  Receipt Date: 20071025
  Transmission Date: 20080405
  Serious: Yes (Other)
  Sender: FDA-Public Use
  Company Number: 2007SP019356

PATIENT
  Age: 45 Year
  Sex: Female
  Weight: 80 kg

DRUGS (6)
  1. BETAMETHASONE [Suspect]
     Indication: ASTHMA
     Dosage: 6 MG; QD; PO, 2 MG; ONCE
     Route: 048
     Dates: start: 20050501, end: 20050501
  2. BETAMETHASONE [Suspect]
     Indication: ASTHMA
     Dosage: 6 MG; QD; PO, 2 MG; ONCE
     Route: 048
     Dates: start: 20070917, end: 20070918
  3. FORADIL [Concomitant]
  4. MIFLASONE [Concomitant]
  5. KESTIN [Concomitant]
  6. FORMOTEROL FUMARATE [Concomitant]

REACTIONS (3)
  - ANGIOEDEMA [None]
  - DRUG HYPERSENSITIVITY [None]
  - RESPIRATORY DISORDER [None]
